FAERS Safety Report 9819874 (Version 1)
Quarter: 2013Q4

REPORT INFORMATION
  Report Type: Spontaneous
  Country: US (occurrence: None)
  Receive Date: 20131223
  Receipt Date: 20131223
  Transmission Date: 20140711
  Serious: No
  Sender: FDA-Public Use
  Company Number: 220928

PATIENT
  Age: 73 Year
  Sex: Male

DRUGS (11)
  1. PICATO (0.015 %, GEL) [Suspect]
     Indication: ACTINIC KERATOSIS
     Route: 061
     Dates: start: 20130309, end: 20130311
  2. LIPITOR (ATORVASTATIN CALCIUM) [Concomitant]
  3. DIOVAN (VALSARTAN) [Concomitant]
  4. METHOTREXATE (METHOTREXATE) [Concomitant]
  5. FOLIC ACID (FOLIC ACID) [Concomitant]
  6. COUMADIN (WARFARIN SODIUM) [Concomitant]
  7. DIGOXIN (DIGOXIN) [Concomitant]
  8. NEXIUM (ESOMEPRAZOLE MAGNESIUM) [Concomitant]
  9. GLYBURIDE (GLIBENCLAMIDE) [Concomitant]
  10. METFORMIN (METFORMIN) [Concomitant]
  11. ALLOPURINOL (ALLOPURINOL) [Concomitant]

REACTIONS (1)
  - Application site erythema [None]
